FAERS Safety Report 5845987-5 (Version None)
Quarter: 2008Q3

REPORT INFORMATION
  Report Type: 
  Country: None (occurrence: None)
  Receive Date: 20080814
  Receipt Date: 20080804
  Transmission Date: 20090109
  Serious: Yes (Disabling)
  Sender: FDA-Public Use
  Company Number: GB-PFIZER INC-2008044891

PATIENT
  Age: 83 Year
  Sex: Female

DRUGS (5)
  1. PREDNISOLONE [Suspect]
     Indication: ULCERATIVE KERATITIS
     Dosage: TEXT:0.5 % DROPS TWICE DAILY
     Route: 047
  2. PREDNISOLONE [Suspect]
     Dosage: DAILY DOSE:5MG-TEXT:5 MG
     Route: 048
  3. CEFUROXIME [Suspect]
     Indication: ULCERATIVE KERATITIS
     Dosage: TEXT:5 % FOUR TIMES DAILY
     Route: 061
  4. OFLOXACIN [Suspect]
     Dosage: TEXT:0.3 % FOUR TIMES DAILY
     Route: 061
  5. TIMOLOL MALEATE [Suspect]
     Indication: ULCERATIVE KERATITIS
     Dosage: TEXT:0.5% TWICE DAILY
     Route: 061

REACTIONS (1)
  - CORNEAL DEPOSITS [None]
